FAERS Safety Report 21699861 (Version 1)
Quarter: 2022Q4

REPORT INFORMATION
  Report Type: Spontaneous
  Country: BE (occurrence: BE)
  Receive Date: 20221208
  Receipt Date: 20221208
  Transmission Date: 20230113
  Serious: Yes (Other)
  Sender: FDA-Public Use
  Company Number: None

PATIENT
  Age: 52 Year
  Sex: Male
  Weight: 104 kg

DRUGS (1)
  1. OLMESARTAN [Suspect]
     Active Substance: OLMESARTAN
     Indication: Hypertension
     Dosage: 40MG, DAILY

REACTIONS (3)
  - Coeliac disease [Recovered/Resolved]
  - Cutaneous vasculitis [Recovered/Resolved]
  - Gastrointestinal disorder [Recovered/Resolved]
